FAERS Safety Report 26098431 (Version 1)
Quarter: 2025Q4

REPORT INFORMATION
  Report Type: Spontaneous
  Country: US (occurrence: US)
  Receive Date: 20251127
  Receipt Date: 20251127
  Transmission Date: 20260118
  Serious: No
  Sender: ABBVIE
  Company Number: US-ABBVIE-6566422

PATIENT
  Age: 42 Year

DRUGS (2)
  1. BOTOX COSMETIC [Suspect]
     Active Substance: ONABOTULINUMTOXINA
     Indication: Eye disorder
     Dosage: TIME INTERVAL: AS NECESSARY: DOSE: 8 UNITS
     Route: 065
     Dates: start: 20251013, end: 20251013
  2. BOTOX COSMETIC [Suspect]
     Active Substance: ONABOTULINUMTOXINA
     Indication: Eye disorder
     Dosage: TIME INTERVAL: AS NECESSARY: DOSE ADJUSTED AND RETREATED?RECONSTITUTION: 2.5
     Route: 065
     Dates: start: 20251103, end: 20251103

REACTIONS (1)
  - Therapeutic response shortened [Unknown]

NARRATIVE: CASE EVENT DATE: 20250101
